FAERS Safety Report 9585724 (Version 2)
Quarter: 2013Q4

REPORT INFORMATION
  Report Type: Spontaneous
  Country: DE (occurrence: DE)
  Receive Date: 20131003
  Receipt Date: 20131024
  Transmission Date: 20140711
  Serious: Yes (Other)
  Sender: FDA-Public Use
  Company Number: DE-ROCHE-1284131

PATIENT
  Age: 24 Year
  Sex: Male
  Weight: 103.5 kg

DRUGS (17)
  1. RITUXIMAB [Suspect]
     Indication: GLOMERULONEPHRITIS
     Route: 042
     Dates: start: 20130917, end: 20130917
  2. RITUXIMAB [Suspect]
     Route: 042
     Dates: start: 20130927, end: 20130927
  3. RITUXIMAB [Suspect]
     Route: 042
     Dates: start: 20131004, end: 20131004
  4. RITUXIMAB [Suspect]
     Dosage: 4 CYCLES
     Route: 042
     Dates: start: 20131015, end: 20131015
  5. TAVEGIL [Concomitant]
     Indication: PREMEDICATION
     Dosage: 2MG/5ML
     Route: 042
     Dates: start: 20130917, end: 20130917
  6. TAVEGIL [Concomitant]
     Indication: HYPERSENSITIVITY
     Dosage: 2MG/5ML
     Route: 042
     Dates: start: 20130927, end: 20130927
  7. TAVEGIL [Concomitant]
     Dosage: 2MG/5ML
     Route: 042
     Dates: start: 20131004, end: 20131004
  8. TAVEGIL [Concomitant]
     Dosage: 2MG/5ML
     Route: 042
     Dates: start: 20131015, end: 20131015
  9. RANITIDIN [Concomitant]
     Indication: PREMEDICATION
     Dosage: 50 MG/5 ML
     Route: 042
     Dates: start: 20130917, end: 20130917
  10. RANITIDIN [Concomitant]
     Dosage: 50 MG/5 ML
     Route: 042
     Dates: start: 20130927, end: 20130927
  11. RANITIDIN [Concomitant]
     Dosage: 50 MG/5 ML
     Route: 042
     Dates: start: 20131004, end: 20131004
  12. RANITIDIN [Concomitant]
     Dosage: 50 MG/5 ML
     Route: 042
     Dates: start: 20131015, end: 20131015
  13. PREDNISOLON [Concomitant]
     Indication: PREMEDICATION
     Dosage: 250 MG/5 ML
     Route: 042
     Dates: start: 20130917, end: 20130917
  14. PREDNISOLON [Concomitant]
     Dosage: 250 MG/5 ML
     Route: 042
     Dates: start: 20130927, end: 20130927
  15. PREDNISOLON [Concomitant]
     Dosage: 250 MG/5 ML
     Route: 042
     Dates: start: 20131004, end: 20131004
  16. PREDNISOLON [Concomitant]
     Dosage: 250 MG/5 ML
     Route: 042
     Dates: start: 20131015, end: 20131015
  17. NACL .9% [Concomitant]
     Route: 065
     Dates: start: 20130917, end: 20130917

REACTIONS (4)
  - Chills [Recovered/Resolved]
  - Throat tightness [Recovered/Resolved]
  - Nausea [Recovered/Resolved]
  - Dizziness [Recovered/Resolved]
